FAERS Safety Report 8100019-3 (Version None)
Quarter: 2012Q1

REPORT INFORMATION
  Report Type: 
  Country: None (occurrence: None)
  Receive Date: 20120129
  Receipt Date: 20111118
  Transmission Date: 20120608
  Serious: No
  Sender: FDA-Public Use
  Company Number: US-ABBOTT-11P-163-0875794-00

PATIENT
  Sex: Female
  Weight: 92.616 kg

DRUGS (2)
  1. HUMIRA [Suspect]
     Indication: COLITIS ULCERATIVE
     Dates: start: 20110701
  2. PENTASA [Concomitant]
     Indication: COLITIS ULCERATIVE

REACTIONS (2)
  - PAIN [None]
  - OFF LABEL USE [None]
